FAERS Safety Report 5118103-5 (Version None)
Quarter: 2006Q4

REPORT INFORMATION
  Report Type: 
  Country: None (occurrence: None)
  Receive Date: 20061002
  Receipt Date: 20060906
  Transmission Date: 20070319
  Serious: Yes (Hospitalization)
  Sender: FDA-Public Use
  Company Number: PHBS2006JP13699

PATIENT
  Age: 90 Year
  Sex: Male

DRUGS (10)
  1. LAMISIL [Suspect]
     Indication: NAIL TINEA
     Dosage: 125 MG/DAY
     Route: 048
     Dates: start: 20060701, end: 20060801
  2. LAMISIL [Suspect]
     Dosage: 125 MG/DAY
     Route: 048
     Dates: start: 20060719, end: 20060903
  3. NITRAZEPAM [Concomitant]
     Indication: SLEEP DISORDER
     Dosage: 5 DF/D
     Route: 048
  4. CARDENALIN [Concomitant]
     Dosage: 2 MG/D
     Route: 048
  5. ADALAT [Concomitant]
     Dosage: 2 DF/D
     Route: 048
  6. URIEF [Concomitant]
     Indication: DYSURIA
     Dosage: 8 MG/D
     Route: 048
     Dates: start: 20060524
  7. CETILO [Concomitant]
     Indication: CONSTIPATION
     Route: 048
  8. PURSENNID [Concomitant]
     Indication: CONSTIPATION
     Dosage: 6 DF/D
     Route: 048
  9. CYSCARBON [Concomitant]
  10. GLYCERIN [Concomitant]
     Route: 054

REACTIONS (11)
  - ALANINE AMINOTRANSFERASE INCREASED [None]
  - ANOREXIA [None]
  - ASPARTATE AMINOTRANSFERASE INCREASED [None]
  - BLOOD CREATINE PHOSPHOKINASE INCREASED [None]
  - BLOOD CREATININE INCREASED [None]
  - BLOOD LACTATE DEHYDROGENASE INCREASED [None]
  - GAIT DISTURBANCE [None]
  - GENERAL PHYSICAL HEALTH DETERIORATION [None]
  - MOBILITY DECREASED [None]
  - PYREXIA [None]
  - RHABDOMYOLYSIS [None]
